FAERS Safety Report 8105751-3 (Version None)
Quarter: 2012Q1

REPORT INFORMATION
  Report Type: 
  Country: None (occurrence: None)
  Receive Date: 20120201
  Receipt Date: 20120125
  Transmission Date: 20120608
  Serious: Yes (Other)
  Sender: FDA-Public Use
  Company Number: US-RB-036436-12

PATIENT
  Age: 29 Year
  Sex: Male

DRUGS (3)
  1. SUBOXONE [Suspect]
     Indication: DRUG DEPENDENCE
     Route: 060
     Dates: start: 20110101, end: 20111201
  2. SUBOXONE [Suspect]
     Indication: DRUG DEPENDENCE
     Route: 060
     Dates: start: 20111201
  3. SUBOXONE [Suspect]
     Route: 060
     Dates: start: 20110301, end: 20110101

REACTIONS (4)
  - OFF LABEL USE [None]
  - SUBSTANCE ABUSE [None]
  - CHEST PAIN [None]
  - BREAST MASS [None]
